FAERS Safety Report 6184963-2 (Version None)
Quarter: 2009Q2

REPORT INFORMATION
  Report Type: 
  Country: None (occurrence: None)
  Receive Date: 20090511
  Receipt Date: 20090130
  Transmission Date: 20091009
  Serious: No
  Sender: FDA-Public Use
  Company Number: A0766125A

PATIENT
  Age: 79 Year
  Sex: Male

DRUGS (9)
  1. COREG CR [Suspect]
     Dosage: 40MG PER DAY
     Route: 048
     Dates: start: 20050101
  2. NEXIUM [Concomitant]
  3. ENALAPRIL MALEATE [Concomitant]
  4. VITAMIN K [Concomitant]
  5. UNKNOWN MEDICATION [Concomitant]
  6. ENULOSE [Concomitant]
  7. SLOW-MAG [Concomitant]
  8. GLYBURIDE AND METFORMIN HCL [Concomitant]
  9. LEXAPRO [Concomitant]

REACTIONS (1)
  - PARAESTHESIA [None]
